FAERS Safety Report 5322005-9 (Version None)
Quarter: 2007Q2

REPORT INFORMATION
  Report Type: 
  Country: None (occurrence: None)
  Receive Date: 20070508
  Receipt Date: 20070508
  Transmission Date: 20071010
  Serious: No
  Sender: FDA-Public Use
  Company Number: None

PATIENT
  Age: 96 Year
  Sex: Male
  Weight: 76.6579 kg

DRUGS (1)
  1. CLEOCIN [Suspect]
     Indication: PNEUMONIA
     Dosage: 600 MG EVERY 8 HOURS MIDLINE
     Dates: start: 20070423, end: 20070427

REACTIONS (1)
  - RASH [None]
